FAERS Safety Report 10928368 (Version 1)
Quarter: 2015Q1

REPORT INFORMATION
  Report Type: Spontaneous
  Country: US (occurrence: None)
  Receive Date: 20150318
  Receipt Date: 20150318
  Transmission Date: 20150721
  Serious: Yes (Disabling, Other)
  Sender: FDA-Public Use
  Company Number: None

PATIENT
  Age: 73 Year
  Sex: Female
  Weight: 77.57 kg

DRUGS (15)
  1. LOPAKINA [Concomitant]
  2. TORROT [Concomitant]
  3. CLONIDINE. [Concomitant]
     Active Substance: CLONIDINE
  4. TYLENOL [Concomitant]
     Active Substance: ACETAMINOPHEN
  5. LANCETS [Concomitant]
     Active Substance: DEVICE
  6. OMEPRAZOLE. [Concomitant]
     Active Substance: OMEPRAZOLE
  7. ARTHRITIS RUB [Concomitant]
  8. LEVOTHYROXINE [Concomitant]
     Active Substance: LEVOTHYROXINE
  9. COLACE [Concomitant]
     Active Substance: DOCUSATE SODIUM
  10. TRAVATAN [Concomitant]
     Active Substance: TRAVOPROST
  11. METFORMIN [Concomitant]
     Active Substance: METFORMIN HYDROCHLORIDE
  12. FE TABS EC 325 MG TAB WINDMILL C [Suspect]
     Active Substance: DIETARY SUPPLEMENT
     Indication: ANAEMIA
     Dosage: 1 PILL
     Route: 048
     Dates: start: 20150126, end: 20150204
  13. RANITIDINE [Concomitant]
     Active Substance: RANITIDINE\RANITIDINE HYDROCHLORIDE
  14. VALSARTAN. [Concomitant]
     Active Substance: VALSARTAN
  15. FREE STYLE TEST STRIPS [Concomitant]

REACTIONS (5)
  - Faeces discoloured [None]
  - Neoplasm malignant [None]
  - Headache [None]
  - Constipation [None]
  - Abdominal pain upper [None]

NARRATIVE: CASE EVENT DATE: 20150126
